FAERS Safety Report 21037677 (Version 9)
Quarter: 2022Q4

REPORT INFORMATION
  Report Type: Report from Study
  Country: AR (occurrence: AR)
  Receive Date: 20220704
  Receipt Date: 20221230
  Transmission Date: 20230113
  Serious: Yes (Other)
  Sender: FDA-Public Use
  Company Number: AR-AMGEN-ARGSL2021042666

PATIENT
  Age: 69 Year
  Sex: Male

DRUGS (1)
  1. VECTIBIX [Suspect]
     Active Substance: PANITUMUMAB
     Indication: Colorectal cancer metastatic
     Dosage: UNK, Q2WK (EVERY 14 DAYS)
     Route: 065
     Dates: start: 20210309

REACTIONS (23)
  - Liver injury [Not Recovered/Not Resolved]
  - Cataract [Unknown]
  - Colitis [Unknown]
  - Ageusia [Unknown]
  - Onychalgia [Unknown]
  - Ingrown hair [Unknown]
  - Nail infection [Not Recovered/Not Resolved]
  - Skin lesion [Unknown]
  - Rash [Not Recovered/Not Resolved]
  - Pruritus [Not Recovered/Not Resolved]
  - Abdominal pain [Unknown]
  - Dry skin [Not Recovered/Not Resolved]
  - Pyrexia [Unknown]
  - Eye irritation [Not Recovered/Not Resolved]
  - Skin ulcer [Not Recovered/Not Resolved]
  - Fatigue [Not Recovered/Not Resolved]
  - Gastric dilatation [Unknown]
  - Eye disorder [Unknown]
  - Skin irritation [Not Recovered/Not Resolved]
  - Sensitive skin [Not Recovered/Not Resolved]
  - Limb discomfort [Unknown]
  - Temperature intolerance [Unknown]
  - Insomnia [Not Recovered/Not Resolved]

NARRATIVE: CASE EVENT DATE: 20210101
